FAERS Safety Report 17823538 (Version 1)
Quarter: 2020Q2

REPORT INFORMATION
  Report Type: Spontaneous
  Country: US (occurrence: US)
  Receive Date: 20200526
  Receipt Date: 20200526
  Transmission Date: 20200714
  Serious: No
  Sender: FDA-Public Use
  Company Number: US-PFIZER INC-2020201362

PATIENT
  Age: 77 Year
  Sex: Female
  Weight: 52 kg

DRUGS (7)
  1. LISINOPRIL. [Suspect]
     Active Substance: LISINOPRIL
     Dosage: 20 MG
     Dates: start: 20200423, end: 2020
  2. LISINOPRIL. [Suspect]
     Active Substance: LISINOPRIL
     Dosage: 20 MG, 1X/DAY (2 10MG TABLETS ONCE A DAY)
  3. LISINOPRIL. [Suspect]
     Active Substance: LISINOPRIL
     Indication: HYPERTENSION
     Dosage: 5 MG (2 WEEKS)
  4. LISINOPRIL. [Suspect]
     Active Substance: LISINOPRIL
     Dosage: 10 MG (ANOTHER 2 WEEKS )
  5. LIPITOR [Suspect]
     Active Substance: ATORVASTATIN CALCIUM
     Indication: BLOOD CHOLESTEROL INCREASED
     Dosage: 30 MG, WEEKLY (10 MG 3 TIMES A WEEK)
     Route: 048
  6. LISINOPRIL. [Suspect]
     Active Substance: LISINOPRIL
     Dosage: 30 MG
     Dates: start: 20200504, end: 20200514
  7. ELIQUIS [Concomitant]
     Active Substance: APIXABAN
     Indication: ANTICOAGULANT THERAPY
     Dosage: 5 MG (1 IN THE MORNING AND 1/2 IN THE EVENING)

REACTIONS (10)
  - Groin pain [Unknown]
  - Feeling abnormal [Unknown]
  - Off label use [Unknown]
  - Pain in extremity [Unknown]
  - Spinal pain [Unknown]
  - Body temperature increased [Unknown]
  - Hypoaesthesia [Unknown]
  - Chills [Unknown]
  - Device use issue [Unknown]
  - Muscle spasms [Not Recovered/Not Resolved]

NARRATIVE: CASE EVENT DATE: 202004
